FAERS Safety Report 8372714-2 (Version None)
Quarter: 2012Q2

REPORT INFORMATION
  Report Type: 
  Country: None (occurrence: None)
  Receive Date: 20120521
  Receipt Date: 20120517
  Transmission Date: 20120825
  Serious: Yes (Other)
  Sender: FDA-Public Use
  Company Number: CA-BAYER-2012-015290

PATIENT
  Age: 43 Year
  Sex: Male
  Weight: 124 kg

DRUGS (1)
  1. AVELOX [Suspect]
     Indication: OTITIS EXTERNA
     Dosage: 400 MG, QD
     Route: 048
     Dates: start: 20110824, end: 20110902

REACTIONS (10)
  - MYALGIA [None]
  - MIGRAINE [None]
  - RASH ERYTHEMATOUS [None]
  - RASH PRURITIC [None]
  - OEDEMA PERIPHERAL [None]
  - PYREXIA [None]
  - TENDONITIS [None]
  - ARTHRALGIA [None]
  - DRUG HYPERSENSITIVITY [None]
  - LIP SWELLING [None]
